FAERS Safety Report 5015760-9 (Version None)
Quarter: 2006Q2

REPORT INFORMATION
  Report Type: 
  Country: None (occurrence: None)
  Receive Date: 20060525
  Receipt Date: 20060508
  Transmission Date: 20061013
  Serious: Yes (Life-Threatening, Hospitalization)
  Sender: FDA-Public Use
  Company Number: NO200605002382

PATIENT
  Age: 70 Year
  Sex: Male

DRUGS (6)
  1. ZYPREXA [Suspect]
     Indication: MAJOR DEPRESSION
     Dosage: 5MG, DAILY (1/D); ORAL
     Route: 048
     Dates: start: 20060201, end: 20060408
  2. MAREVAN ^NYCOMED^ (WARFARIN SODIUM) [Concomitant]
  3. DIGITOXIN (DIGOXIN) [Concomitant]
  4. STILNOCT (ZOLPIDEM TARTRATE) [Concomitant]
  5. CIPRAMIL (CITALOPRAM HYDROBROMIDE) [Concomitant]
  6. ENALAPRIL MALEATE [Concomitant]

REACTIONS (1)
  - BONE MARROW FAILURE [None]
